FAERS Safety Report 4610375-6 (Version None)
Quarter: 2005Q2

REPORT INFORMATION
  Report Type: 
  Country: None (occurrence: None)
  Receive Date: 20050301
  Receipt Date: 20041222
  Transmission Date: 20051028
  Serious: No
  Sender: FDA-Public Use
  Company Number: WAES 0412USA02759

PATIENT
  Age: 79 Year
  Sex: Male

DRUGS (4)
  1. ZETIA [Suspect]
     Indication: BLOOD CHOLESTEROL INCREASED
     Dosage: 10 MG/DAILY/PO
     Route: 048
     Dates: start: 20041210
  2. HYDRON PSC [Concomitant]
  3. MIACALCIN [Concomitant]
  4. ZESTRIL [Concomitant]

REACTIONS (3)
  - ADVERSE EVENT [None]
  - PHARYNGOLARYNGEAL PAIN [None]
  - PRURITUS [None]
